FAERS Safety Report 14552292 (Version 1)
Quarter: 2018Q1

REPORT INFORMATION
  Report Type: Spontaneous
  Country: FR (occurrence: FR)
  Receive Date: 20180220
  Receipt Date: 20180220
  Transmission Date: 20180509
  Serious: Yes (Other)
  Sender: FDA-Public Use
  Company Number: FR-ASTRAZENECA-2018SE18916

PATIENT
  Age: 65 Year
  Sex: Male
  Weight: 92 kg

DRUGS (5)
  1. SECUKINUMAB. [Suspect]
     Active Substance: SECUKINUMAB
     Indication: PSORIASIS
     Route: 058
     Dates: start: 20171218
  2. LYRICA [Suspect]
     Active Substance: PREGABALIN
     Indication: PAIN
     Dosage: 200.0MG UNKNOWN
     Route: 048
     Dates: start: 20170601
  3. NAPROXEN SODIUM. [Suspect]
     Active Substance: NAPROXEN SODIUM
     Indication: ARTHRITIS
     Dosage: 1100.0MG UNKNOWN
     Route: 048
     Dates: start: 20170601
  4. MOPRAL [Suspect]
     Active Substance: OMEPRAZOLE
     Indication: GASTRITIS
     Dosage: 40.0MG UNKNOWN
     Route: 048
     Dates: start: 20170601
  5. RIFINAH [Suspect]
     Active Substance: ISONIAZID\RIFAMPIN
     Indication: PRODUCT USED FOR UNKNOWN INDICATION
     Dosage: 1 DF (300 MG/150 MG), UNK
     Route: 048
     Dates: start: 20171109

REACTIONS (5)
  - Musculoskeletal pain [Recovering/Resolving]
  - Bone disorder [Recovering/Resolving]
  - Inappropriate schedule of drug administration [Unknown]
  - Presyncope [Recovered/Resolved]
  - Nausea [Recovered/Resolved]

NARRATIVE: CASE EVENT DATE: 20171220
